FAERS Safety Report 5199966-4 (Version None)
Quarter: 2007Q1

REPORT INFORMATION
  Report Type: 
  Country: None (occurrence: None)
  Receive Date: 20070103
  Receipt Date: 20061219
  Transmission Date: 20070707
  Serious: Yes (Death, Other)
  Sender: FDA-Public Use
  Company Number: 2006-03231

PATIENT
  Sex: 0

DRUGS (1)
  1. VELCADE [Suspect]
     Indication: SMALL CELL LUNG CANCER STAGE UNSPECIFIED
     Dosage: 1.30 MG/M2, IV BOLUS
     Route: 040

REACTIONS (5)
  - DISEASE PROGRESSION [None]
  - DYSPNOEA [None]
  - HYPERCALCAEMIA [None]
  - PNEUMONIA [None]
  - RESPIRATORY FAILURE [None]
